FAERS Safety Report 6721149-4 (Version None)
Quarter: 2010Q2

REPORT INFORMATION
  Report Type: 
  Country: None (occurrence: None)
  Receive Date: 20100512
  Receipt Date: 20100505
  Transmission Date: 20101027
  Serious: Yes (Other)
  Sender: FDA-Public Use
  Company Number: US-KINGPHARMUSA00001-K201000537

PATIENT
  Age: 18 Year
  Sex: Female
  Weight: 58.957 kg

DRUGS (4)
  1. FLECTOR [Suspect]
     Indication: TENDONITIS
     Dosage: 1 PATCH, EVERY 12 HOURS
     Route: 061
     Dates: start: 20090101, end: 20100201
  2. FLECTOR [Suspect]
     Indication: ARTHRALGIA
  3. PERCOCET [Concomitant]
  4. FLEXERIL [Concomitant]
     Dosage: UNK, PRN

REACTIONS (4)
  - APPLICATION SITE HAEMATOMA [None]
  - APPLICATION SITE IRRITATION [None]
  - APPLICATION SITE PRURITUS [None]
  - HAEMATOMA [None]
